FAERS Safety Report 7117620-6 (Version None)
Quarter: 2010Q4

REPORT INFORMATION
  Report Type: 
  Country: None (occurrence: None)
  Receive Date: 20101122
  Receipt Date: 20101115
  Transmission Date: 20110411
  Serious: Yes (Other)
  Sender: FDA-Public Use
  Company Number: DE-AMGEN-KDC426470

PATIENT

DRUGS (11)
  1. PEGFILGRASTIM [Suspect]
     Indication: CHEMOTHERAPY
     Dosage: 6 MG, UNK
     Dates: start: 20100722, end: 20100722
  2. ADRIAMYCIN PFS [Concomitant]
     Dosage: UNK UNK, UNK
     Dates: start: 20100719, end: 20100719
  3. PROCARBAZINE HYDROCHLORIDE [Concomitant]
     Dosage: UNK UNK, UNK
     Dates: start: 20100719, end: 20100722
  4. ETOPOSIDE [Concomitant]
     Dosage: UNK UNK, UNK
     Dates: start: 20100719, end: 20100721
  5. CYCLOPHOSPHAMIDE [Concomitant]
     Dosage: UNK UNK, UNK
     Dates: start: 20100719, end: 20100719
  6. PREDNISONE [Concomitant]
     Dosage: UNK UNK, UNK
     Dates: start: 20100719, end: 20100722
  7. GRANISETRON HCL [Concomitant]
     Dosage: 1 MG, UNK
     Dates: start: 20100719, end: 20100721
  8. UROMITEXAN [Concomitant]
     Dosage: UNK UNK, UNK
     Dates: start: 20100719, end: 20100719
  9. BLEOMYCIN SULFATE [Concomitant]
     Dosage: 27 MG, QD
     Route: 042
  10. VINCRISTINE [Concomitant]
     Dosage: 25 MG, QD
     Route: 040
  11. FENISTIL [Concomitant]

REACTIONS (3)
  - ANAPHYLACTIC SHOCK [None]
  - CIRCULATORY COLLAPSE [None]
  - VOMITING [None]
